FAERS Safety Report 15053174 (Version 1)
Quarter: 2018Q2

REPORT INFORMATION
  Report Type: Report from Study
  Country: US (occurrence: US)
  Receive Date: 20180622
  Receipt Date: 20180622
  Transmission Date: 20180711
  Serious: Yes (Other)
  Sender: FDA-Public Use
  Company Number: US-ACTELION-A-US2018-173460

PATIENT
  Age: 77 Year
  Sex: Male

DRUGS (2)
  1. UPTRAVI [Suspect]
     Active Substance: SELEXIPAG
     Dosage: 400 MCG, BID
     Route: 048
     Dates: start: 20180511
  2. UPTRAVI [Suspect]
     Active Substance: SELEXIPAG
     Indication: PULMONARY ARTERIAL HYPERTENSION
     Dosage: 600 MCG, BID
     Route: 048
     Dates: end: 20180607

REACTIONS (16)
  - Renal impairment [Unknown]
  - Diabetic neuropathy [Recovered/Resolved]
  - Diarrhoea [Unknown]
  - Fluid retention [Unknown]
  - Headache [Recovered/Resolved]
  - Condition aggravated [Recovered/Resolved]
  - Pain in extremity [Unknown]
  - Dizziness [Unknown]
  - Nausea [Recovered/Resolved]
  - Pain [Recovered/Resolved]
  - Hypotension [Unknown]
  - Peripheral swelling [Unknown]
  - Weight increased [Unknown]
  - Insomnia [Unknown]
  - Arthralgia [Recovered/Resolved]
  - Dyspnoea [Unknown]
